FAERS Safety Report 15458590 (Version 1)
Quarter: 2018Q4

REPORT INFORMATION
  Report Type: Spontaneous
  Country: US (occurrence: US)
  Receive Date: 20181003
  Receipt Date: 20181003
  Transmission Date: 20190204
  Serious: Yes (Other)
  Sender: FDA-Public Use
  Company Number: US-RICON PHARMA, LLC-RIC201809-000968

PATIENT
  Age: 28 Year
  Sex: Male

DRUGS (4)
  1. TRIAMCINOLONE ACETONIDE. [Suspect]
     Active Substance: TRIAMCINOLONE ACETONIDE
     Indication: CHALAZION
     Dosage: 0.5-ML (10 MG/ML)
     Route: 026
  2. VERTEPORFIN [Concomitant]
     Active Substance: VERTEPORFIN
  3. ERYTHROMYCIN. [Concomitant]
     Active Substance: ERYTHROMYCIN
  4. VERTEPORFIN [Concomitant]
     Active Substance: VERTEPORFIN
     Dosage: 25 J/CM^2 LASER FLUENCE

REACTIONS (5)
  - Retinal oedema [Unknown]
  - Chorioretinopathy [Unknown]
  - Visual field defect [Recovered/Resolved]
  - Visual acuity reduced [Unknown]
  - Detachment of retinal pigment epithelium [Recovered/Resolved]
